FAERS Safety Report 21558627 (Version 6)
Quarter: 2022Q4

REPORT INFORMATION
  Report Type: Spontaneous
  Country: JP (occurrence: JP)
  Receive Date: 20221107
  Receipt Date: 20221223
  Transmission Date: 20230112
  Serious: No
  Sender: FDA-Public Use
  Company Number: JP-UCBJ-CD202211015UCBPHAPROD

PATIENT
  Age: 13 Year
  Sex: Male
  Weight: 25 kg

DRUGS (7)
  1. VIMPAT [Suspect]
     Active Substance: LACOSAMIDE
     Indication: Epilepsy
     Dosage: 15 MILLIGRAM, 2X/DAY (BID)
     Route: 048
     Dates: start: 20220927
  2. VIMPAT [Suspect]
     Active Substance: LACOSAMIDE
     Dosage: 30 MILLIGRAM, 2X/DAY (BID)
     Route: 048
     Dates: start: 20221011, end: 20221013
  3. VIMPAT [Suspect]
     Active Substance: LACOSAMIDE
     Dosage: 22.5 MILLIGRAM, 2X/DAY (BID)
     Route: 048
     Dates: end: 20221018
  4. VIMPAT [Suspect]
     Active Substance: LACOSAMIDE
     Dosage: 22.5 MILLIGRAM, 2X/DAY (BID)
     Route: 048
     Dates: start: 20221014, end: 20221022
  5. VALPROATE SODIUM [Concomitant]
     Active Substance: VALPROATE SODIUM
     Indication: Epilepsy
     Dosage: 200 MILLIGRAM
     Route: 048
     Dates: start: 201308
  6. LAMICTAL [Concomitant]
     Active Substance: LAMOTRIGINE
     Indication: Epilepsy
     Dosage: 12 MILLIGRAM
     Route: 048
  7. LAMICTAL [Concomitant]
     Active Substance: LAMOTRIGINE
     Dosage: 12 MILLIGRAM
     Route: 048
     Dates: start: 201308

REACTIONS (5)
  - Restlessness [Recovered/Resolved]
  - Agitation [Recovered/Resolved]
  - Hypertonia [Recovered/Resolved]
  - Posture abnormal [Recovered/Resolved]
  - Underdose [Unknown]

NARRATIVE: CASE EVENT DATE: 20221011
